FAERS Safety Report 13054600 (Version 2)
Quarter: 2017Q1

REPORT INFORMATION
  Report Type: Spontaneous
  Country: None (occurrence: FR)
  Receive Date: 20161222
  Receipt Date: 20170109
  Transmission Date: 20170428
  Serious: Yes (Other)
  Sender: FDA-Public Use
  Company Number: FR-MEDAC PHARMA, INC.-1061167

PATIENT
  Age: 38 Year
  Sex: Female

DRUGS (6)
  1. XOLAIR [Suspect]
     Active Substance: OMALIZUMAB
     Route: 042
     Dates: start: 201605
  2. FOLIC ACID. [Concomitant]
     Active Substance: FOLIC ACID
  3. TACROLIMUS. [Concomitant]
     Active Substance: TACROLIMUS
  4. METOFJECT [Suspect]
     Active Substance: METHOTREXATE SODIUM
     Indication: URTICARIA CHRONIC
     Route: 058
     Dates: start: 201603
  5. BILASKA [Concomitant]
     Active Substance: BILASTINE
  6. COPPER-SILVER-SELENIUM [Concomitant]

REACTIONS (5)
  - Product use issue [None]
  - Nausea [Unknown]
  - Tendonitis [Not Recovered/Not Resolved]
  - Drug interaction [Not Recovered/Not Resolved]
  - Asthenia [Unknown]

NARRATIVE: CASE EVENT DATE: 201603
